FAERS Safety Report 20149676 (Version 2)
Quarter: 2021Q4

REPORT INFORMATION
  Report Type: Report from Study
  Country: IT (occurrence: IT)
  Receive Date: 20211206
  Receipt Date: 20211213
  Transmission Date: 20220303
  Serious: Yes (Death)
  Sender: FDA-Public Use
  Company Number: IT-ABBVIE-21K-083-4185921-00

PATIENT
  Age: 76 Year
  Sex: Male

DRUGS (2)
  1. CARBIDOPA\LEVODOPA [Suspect]
     Active Substance: CARBIDOPA\LEVODOPA
     Indication: Parkinson^s disease
     Dosage: 20 MG/ML 5 MG/ML GEL ?TOTAL DOSE (MG): 1845; PUMP : MD: 11 PLUS 3; CR: 5,5 (13H); ED: 3,5
     Route: 050
     Dates: start: 20170726, end: 20211202
  2. CARBIDOPA\LEVODOPA [Suspect]
     Active Substance: CARBIDOPA\LEVODOPA

REACTIONS (4)
  - Death [Fatal]
  - Malnutrition [Fatal]
  - Blood test abnormal [Fatal]
  - Blood electrolytes decreased [Fatal]

NARRATIVE: CASE EVENT DATE: 20211201
